FAERS Safety Report 4313088-3 (Version None)
Quarter: 2004Q1

REPORT INFORMATION
  Report Type: 
  Country: None (occurrence: None)
  Receive Date: 20040304
  Receipt Date: 20040226
  Transmission Date: 20041129
  Serious: Yes (Other)
  Sender: FDA-Public Use
  Company Number: 2003145318US

PATIENT
  Age: 68 Year
  Sex: Female
  Weight: 65.8 kg

DRUGS (1)
  1. DETROL LA [Suspect]
     Dosage: QD, ORAL
     Route: 048
     Dates: start: 20021124, end: 20030118

REACTIONS (6)
  - BLOOD PRESSURE SYSTOLIC INCREASED [None]
  - FATIGUE [None]
  - FEELING ABNORMAL [None]
  - FLUSHING [None]
  - HEADACHE [None]
  - NECK PAIN [None]
